FAERS Safety Report 6021169-1 (Version None)
Quarter: 2008Q4

REPORT INFORMATION
  Report Type: 
  Country: None (occurrence: None)
  Receive Date: 20081229
  Receipt Date: 20081215
  Transmission Date: 20090506
  Serious: Yes (Death, Hospitalization, Other)
  Sender: FDA-Public Use
  Company Number: US-PFIZER INC-2008154112

PATIENT
  Age: 58 Year
  Sex: Female

DRUGS (5)
  1. ALPRAZOLAM [Suspect]
     Dosage: 0.25 MG, UNK
     Route: 048
  2. ACETAMINOPHEN/DIPHENHYDRAMINE [Suspect]
     Route: 048
  3. ZOLPIDEM TARTRATE [Suspect]
     Dosage: 10 MG, UNK
     Route: 048
  4. RISPERIDONE [Suspect]
     Route: 048
  5. FLUOXETINE HYDROCHLORIDE [Suspect]
     Dosage: 100 MG, UNK

REACTIONS (4)
  - COMA [None]
  - COMPLETED SUICIDE [None]
  - METABOLIC ACIDOSIS [None]
  - SUBSTANCE ABUSE [None]
